FAERS Safety Report 6374755-3 (Version None)
Quarter: 2009Q3

REPORT INFORMATION
  Report Type: 
  Country: None (occurrence: None)
  Receive Date: 20090924
  Receipt Date: 20090915
  Transmission Date: 20100115
  Serious: Yes (Hospitalization)
  Sender: FDA-Public Use
  Company Number: PHHO2008US11007

PATIENT
  Sex: Male
  Weight: 85.2 kg

DRUGS (3)
  1. BLINDED ACZ885 ACZ+SOLINF+COPD [Suspect]
     Indication: CHRONIC OBSTRUCTIVE PULMONARY DISEASE
     Dosage: DOUBLE BLIND
     Route: 042
     Dates: start: 20080521, end: 20090325
  2. BLINDED NO TREATMENT RECEIVED NOMED [Suspect]
     Indication: CHRONIC OBSTRUCTIVE PULMONARY DISEASE
     Dosage: DOUBLE BLIND
     Route: 042
     Dates: start: 20080521, end: 20090325
  3. BLINDED PLACEBO COMP-PLA+ [Suspect]
     Indication: CHRONIC OBSTRUCTIVE PULMONARY DISEASE
     Dosage: DOUBLE BLIND
     Route: 042
     Dates: start: 20080521, end: 20090325

REACTIONS (7)
  - CHILLS [None]
  - CHRONIC OBSTRUCTIVE PULMONARY DISEASE [None]
  - DISEASE PROGRESSION [None]
  - DYSPNOEA [None]
  - HAEMOPHILUS INFECTION [None]
  - LYMPHOCYTOSIS [None]
  - PYREXIA [None]
